FAERS Safety Report 16879128 (Version 1)
Quarter: 2019Q4

REPORT INFORMATION
  Report Type: Spontaneous
  Country: BR (occurrence: BR)
  Receive Date: 20191003
  Receipt Date: 20191003
  Transmission Date: 20200122
  Serious: Yes (Hospitalization, Other)
  Sender: FDA-Public Use
  Company Number: BR-ROCHE-2418100

PATIENT
  Age: 48 Year

DRUGS (1)
  1. MABTHERA [Suspect]
     Active Substance: RITUXIMAB
     Indication: NON-HODGKIN^S LYMPHOMA
     Route: 065
     Dates: start: 20190823

REACTIONS (5)
  - Dyspnoea [Unknown]
  - Dizziness [Unknown]
  - Cutaneous vasculitis [Unknown]
  - Rash [Unknown]
  - Dehydration [Unknown]

NARRATIVE: CASE EVENT DATE: 20190827
